FAERS Safety Report 15356756 (Version 1)
Quarter: 2018Q3

REPORT INFORMATION
  Report Type: Spontaneous
  Country: US (occurrence: US)
  Receive Date: 20180906
  Receipt Date: 20180906
  Transmission Date: 20181010
  Serious: Yes (Other)
  Sender: FDA-Public Use
  Company Number: US-SAKK-2018SA247026AA

PATIENT
  Sex: Female

DRUGS (1)
  1. SOLIQUA 100/33 [Suspect]
     Active Substance: INSULIN GLARGINE\LIXISENATIDE
     Dosage: 60 U, QD
     Route: 058

REACTIONS (5)
  - Diabetes mellitus inadequate control [Unknown]
  - Malaise [Unknown]
  - Blood glucose increased [Unknown]
  - Ear infection [Unknown]
  - Drug ineffective [Unknown]
